FAERS Safety Report 15863308 (Version 1)
Quarter: 2019Q1

REPORT INFORMATION
  Report Type: Spontaneous
  Country: GB (occurrence: GB)
  Receive Date: 20190124
  Receipt Date: 20190124
  Transmission Date: 20190417
  Serious: Yes (Other)
  Sender: FDA-Public Use
  Company Number: PHHY2019GB010789

PATIENT
  Age: 49 Year
  Sex: Female

DRUGS (1)
  1. METHOTREXATE. [Suspect]
     Active Substance: METHOTREXATE
     Indication: ARTHRITIS
     Route: 065

REACTIONS (5)
  - Interstitial lung disease [Unknown]
  - Therapeutic response decreased [Unknown]
  - Systemic scleroderma [Unknown]
  - Skin hypertrophy [Unknown]
  - Ischaemia [Unknown]
